FAERS Safety Report 4282523-1 (Version None)
Quarter: 2004Q1

REPORT INFORMATION
  Report Type: 
  Country: None (occurrence: None)
  Receive Date: 20040129
  Receipt Date: 20040121
  Transmission Date: 20041129
  Serious: Yes (Death)
  Sender: FDA-Public Use
  Company Number: 2004IC000010

PATIENT
  Age: 18 Year
  Sex: 0

DRUGS (3)
  1. LIBRIUM [Suspect]
     Dosage: ORAL
     Route: 048
  2. OPIATE [Suspect]
     Dosage: ORAL
     Route: 048
  3. DIAZEPAM [Suspect]
     Dosage: ORAL
     Route: 048

REACTIONS (1)
  - OVERDOSE [None]
